FAERS Safety Report 4489150-1 (Version None)
Quarter: 2004Q4

REPORT INFORMATION
  Report Type: 
  Country: None (occurrence: None)
  Receive Date: 20041029
  Receipt Date: 20041021
  Transmission Date: 20050328
  Serious: Yes (Life-Threatening, Hospitalization, Disabling)
  Sender: FDA-Public Use
  Company Number: US-MERCK-0410USA03396

PATIENT
  Age: 44 Year
  Sex: Male

DRUGS (4)
  1. VIOXX [Suspect]
     Indication: ARTHRALGIA
     Route: 048
     Dates: start: 20030101, end: 20030101
  2. VIOXX [Suspect]
     Route: 048
     Dates: start: 20030101, end: 20030101
  3. HYDROCORTONE [Concomitant]
     Route: 048
  4. AMBIEN [Concomitant]
     Route: 065

REACTIONS (4)
  - AORTIC RUPTURE [None]
  - CARDIAC ARREST [None]
  - MYOCARDIAL INFARCTION [None]
  - PHOTOSENSITIVITY REACTION [None]
